FAERS Safety Report 4801487-2 (Version None)
Quarter: 2005Q4

REPORT INFORMATION
  Report Type: 
  Country: None (occurrence: None)
  Receive Date: 20051018
  Receipt Date: 20051006
  Transmission Date: 20060501
  Serious: Yes (Hospitalization)
  Sender: FDA-Public Use
  Company Number: US-JNJFOC-20051001772

PATIENT
  Sex: Male

DRUGS (5)
  1. INFLIXIMAB [Suspect]
     Indication: RHEUMATOID ARTHRITIS
     Route: 042
  2. FOLIC ACID [Concomitant]
  3. IBUPROFEN [Concomitant]
  4. PREDNISONE [Concomitant]
  5. METHOTREXATE [Concomitant]

REACTIONS (4)
  - ATRIAL SEPTAL DEFECT [None]
  - DIZZINESS [None]
  - DRUG TOXICITY [None]
  - EMPHYSEMA [None]
